FAERS Safety Report 23479113 (Version 3)
Quarter: 2024Q1

REPORT INFORMATION
  Report Type: Spontaneous
  Country: DE (occurrence: DE)
  Receive Date: 20240205
  Receipt Date: 20240220
  Transmission Date: 20240410
  Serious: Yes (Hospitalization)
  Sender: FDA-Public Use
  Company Number: DE-SAMSUNG BIOEPIS-SB-2024-02198

PATIENT
  Age: 48 Year
  Sex: Male
  Weight: 72 kg

DRUGS (10)
  1. DOCETAXEL [Suspect]
     Active Substance: DOCETAXEL\DOCETAXEL ANHYDROUS
     Indication: Oesophageal adenocarcinoma
     Dosage: 75 MILLIGRAM 50 MG/M2, IV, D1/D15/D29 AND D43 PRE-AND POST OP
     Route: 042
     Dates: start: 20230526
  2. OXALIPLATIN [Suspect]
     Active Substance: OXALIPLATIN
     Indication: Oesophageal adenocarcinoma
     Dosage: 124 MILLIGRAM 985 MG/M2, IV, D1/D15/D29 AND D43 PRE-AND POST OP)
     Route: 042
     Dates: start: 20230526
  3. LEUCOVORIN [Suspect]
     Active Substance: LEUCOVORIN\LEUCOVORIN CALCIUM
     Indication: Oesophageal adenocarcinoma
     Dosage: 290 MILLIGRAM (200 MG/M2, IV, D1/D15/D29 AND D43 PRE-AND POST OP)
     Route: 042
     Dates: start: 20230526
  4. FLUOROURACIL [Suspect]
     Active Substance: FLUOROURACIL
     Indication: Oesophageal adenocarcinoma
     Dosage: 5070 MILLIGRAM (2600 MG/M2, IV, D1/D15/D29 AND D43 PRE-AND POST OP)
     Route: 042
     Dates: start: 20230526
  5. ONTRUZANT [Suspect]
     Active Substance: TRASTUZUMAB-DTTB
     Indication: Oesophageal adenocarcinoma
     Dosage: 446 MILLIGRAM (D1: 8 MG/KG, IV; 6 MG/KG IV D22/D43 PRE-AND POST OP, ATFERWARDS 6 MG/KG IV D1 Q3W)
     Route: 042
     Dates: start: 20230526
  6. ONTRUZANT [Suspect]
     Active Substance: TRASTUZUMAB-DTTB
     Dosage: 8 MILLIGRAM/KILOGRAM (D1: 8 MG/KG, IV;)
     Route: 042
     Dates: start: 20230526
  7. ONTRUZANT [Suspect]
     Active Substance: TRASTUZUMAB-DTTB
     Dosage: 6 MILLIGRAM/KILOGRAM (AFTERWARDS 6 MG/KG IV D1 Q3W)
     Route: 042
     Dates: start: 20240110
  8. ONTRUZANT [Suspect]
     Active Substance: TRASTUZUMAB-DTTB
     Dosage: 6 MILLIGRAM/KILOGRAM (6 MG/KG IV D22/D43 PRE-AND POST OP, AFTERWARDS 6 MG/KG IV D1 Q3W)
     Route: 042
  9. PEMBROLIZUMAB [Suspect]
     Active Substance: PEMBROLIZUMAB
     Indication: Oesophageal adenocarcinoma
     Dosage: 200 MILLIGRAM (200 MG FLAT DOSE, IV; D1/D22/D43 PRE-AND POST OP, ATFERWARDS D1 Q3W)
     Route: 042
     Dates: start: 20230526
  10. PEMBROLIZUMAB [Suspect]
     Active Substance: PEMBROLIZUMAB
     Dosage: 200 MILLIGRAM
     Route: 042

REACTIONS (2)
  - Dysphagia [Recovered/Resolved]
  - Product use in unapproved indication [Unknown]

NARRATIVE: CASE EVENT DATE: 20240112
